FAERS Safety Report 17787005 (Version 4)
Quarter: 2021Q2

REPORT INFORMATION
  Report Type: Spontaneous
  Country: US (occurrence: US)
  Receive Date: 20200514
  Receipt Date: 20210514
  Transmission Date: 20210716
  Serious: Yes (Hospitalization, Other)
  Sender: FDA-Public Use
  Company Number: US-PFIZER INC-2020192727

PATIENT
  Age: 56 Year
  Sex: Female
  Weight: 126.4 kg

DRUGS (18)
  1. COLACE [Concomitant]
     Active Substance: DOCUSATE SODIUM
     Dosage: 100 MG
  2. DIPHENHYDRAMINE HCL [Concomitant]
     Active Substance: DIPHENHYDRAMINE HYDROCHLORIDE
     Dosage: 25 MG
  3. TORSEMIDE. [Concomitant]
     Active Substance: TORSEMIDE
     Dosage: 10 MG
  4. ALLOPURINOL. [Concomitant]
     Active Substance: ALLOPURINOL
     Dosage: 100 MG
  5. ALEVE [Concomitant]
     Active Substance: NAPROXEN SODIUM
     Dosage: 220 MG
  6. METOPROLOL TARTRATE. [Concomitant]
     Active Substance: METOPROLOL TARTRATE
     Dosage: 25 MG
  7. ELIQUIS [Concomitant]
     Active Substance: APIXABAN
     Dosage: 2.5 MG
  8. VITAMIN D3 [Concomitant]
     Active Substance: CHOLECALCIFEROL
     Dosage: 10 UG
  9. HYDRALAZINE HCL [Concomitant]
     Active Substance: HYDRALAZINE HYDROCHLORIDE
     Dosage: 10 MG
  10. XELJANZ [Suspect]
     Active Substance: TOFACITINIB CITRATE
     Indication: RHEUMATOID ARTHRITIS
     Dosage: 5 MG, 2X/DAY
     Route: 048
     Dates: start: 201910, end: 202005
  11. POLYETHYLENE GLYCOL [Concomitant]
     Active Substance: POLYETHYLENE GLYCOLS
     Dosage: 17 G
  12. ZOFRAN [Concomitant]
     Active Substance: ONDANSETRON HYDROCHLORIDE
     Dosage: 4 MG
  13. XELJANZ [Suspect]
     Active Substance: TOFACITINIB CITRATE
     Dosage: 5 MG, 2X/DAY
     Route: 048
     Dates: start: 20200513, end: 2021
  14. VITAMIN B12 [Concomitant]
     Active Substance: CYANOCOBALAMIN
     Dosage: 2500 UG
  15. BACLOFEN. [Concomitant]
     Active Substance: BACLOFEN
     Dosage: 10 MG
  16. FLONASE ALLERGY RELIEF [Concomitant]
     Active Substance: FLUTICASONE PROPIONATE
     Dosage: UNK
  17. GABAPENTIN. [Concomitant]
     Active Substance: GABAPENTIN
     Dosage: 100 MG
  18. ZYRTEC [Concomitant]
     Active Substance: CETIRIZINE HYDROCHLORIDE
     Dosage: 10 MG

REACTIONS (7)
  - Drug ineffective [Unknown]
  - Skin ulcer [Recovering/Resolving]
  - Arthralgia [Not Recovered/Not Resolved]
  - Pain in extremity [Not Recovered/Not Resolved]
  - Joint swelling [Not Recovered/Not Resolved]
  - Cellulitis [Recovering/Resolving]
  - Pain [Not Recovered/Not Resolved]

NARRATIVE: CASE EVENT DATE: 202005
